FAERS Safety Report 18078433 (Version 1)
Quarter: 2020Q3

REPORT INFORMATION
  Report Type: Spontaneous
  Country: US (occurrence: US)
  Receive Date: 20200727
  Receipt Date: 20200727
  Transmission Date: 20201103
  Serious: Yes (Hospitalization)
  Sender: FDA-Public Use
  Company Number: None

PATIENT
  Age: 78 Year
  Sex: Male
  Weight: 88.1 kg

DRUGS (22)
  1. ACETAMINOPHEN AS NEEDED [Concomitant]
     Dates: start: 20200724
  2. ATORVASTATIN 40MG DAILY [Concomitant]
     Dates: start: 20200721, end: 20200725
  3. ALBUTEROL/IPRATROPIUM NEB 4 TIMES DAILY [Concomitant]
     Dates: start: 20200721, end: 20200726
  4. ASCORBIC ACID 500MG TABLET TWICE DAILY [Concomitant]
     Dates: start: 20200723, end: 20200726
  5. CLOPIDOGREL 75MG TABLET DAILY [Concomitant]
     Dates: start: 20200722, end: 20200726
  6. ENOXAPARIN 40MG SUB Q DAILY [Concomitant]
     Dates: start: 20200721, end: 20200725
  7. LACTOBACILLUS 1 CAPSULE DAILY [Concomitant]
     Dates: start: 20200720, end: 20200726
  8. METHYLPREDNISOLONE 40MG IV Q6H [Concomitant]
     Dates: start: 20200721, end: 20200726
  9. MIDAZOLAM INFUSION [Concomitant]
     Active Substance: MIDAZOLAM HYDROCHLORIDE
     Dates: start: 20200724, end: 20200726
  10. THIAMINE 200MG IV TWICE DAILY [Concomitant]
     Dates: start: 20200721, end: 20200726
  11. NOREPINEPHRINE INFUSION [Concomitant]
     Dates: start: 20200724, end: 20200726
  12. MEROPENEM 1G IV Q12H [Concomitant]
     Dates: start: 20200724, end: 20200725
  13. AMLODIPINE 10MG AT BEDTIME [Concomitant]
     Dates: start: 20200721, end: 20200725
  14. REMDESIVIR. [Suspect]
     Active Substance: REMDESIVIR
     Indication: SARS-COV-2 TEST POSITIVE
     Route: 042
     Dates: start: 20200723, end: 20200725
  15. FAMOTIDINE 20MG TABLET TWICE DAILY [Concomitant]
     Dates: start: 20200721, end: 20200723
  16. LINEZOLID 600MG IV Q12H [Concomitant]
     Dates: start: 20200722, end: 20200726
  17. ZINC SULFATE 220MG PO TWICE DIALY [Concomitant]
     Dates: start: 20200721, end: 20200726
  18. ATENOLOL 50MG TABLET DAILY [Concomitant]
     Dates: start: 20200722, end: 20200725
  19. FUROSEMIDE 40MG IV TWICE DAILY [Concomitant]
     Dates: start: 20200724, end: 20200725
  20. ASPIRIN 81MG DAILY [Concomitant]
     Active Substance: ASPIRIN
     Dates: start: 20200722, end: 20200726
  21. BUDESONIDE 0.5MG NEB TWICE DAILY [Concomitant]
     Dates: start: 20200722, end: 20200726
  22. FENTANYL INFUSION [Concomitant]
     Active Substance: FENTANYL
     Dates: start: 20200724, end: 20200726

REACTIONS (2)
  - Glomerular filtration rate decreased [None]
  - Therapy interrupted [None]

NARRATIVE: CASE EVENT DATE: 20200725
